FAERS Safety Report 17233074 (Version 1)
Quarter: 2020Q1

REPORT INFORMATION
  Report Type: Report from Study
  Country: ES (occurrence: ES)
  Receive Date: 20200104
  Receipt Date: 20200104
  Transmission Date: 20200409
  Serious: Yes (Hospitalization)
  Sender: FDA-Public Use
  Company Number: ES-TEVA-2019-ES-1161286

PATIENT
  Age: 89 Year
  Sex: Male

DRUGS (5)
  1. IBUPROFENO (1769A) [Suspect]
     Active Substance: IBUPROFEN
     Indication: PAIN
     Dosage: 2 DOSAGE FORMS 3 MONTHS
     Route: 048
     Dates: start: 20190707, end: 20190709
  2. XARELTO [Interacting]
     Active Substance: RIVAROXABAN
     Indication: ATRIAL FIBRILLATION
     Dosage: 20 MG 1 DAYS
     Route: 048
     Dates: start: 201805, end: 20190709
  3. WARFARINA SODICA (3221SO) [Interacting]
     Active Substance: WARFARIN SODIUM
     Indication: ATRIAL FIBRILLATION
     Route: 048
     Dates: start: 201711, end: 201805
  4. LOSARTAN (7157A) [Concomitant]
     Active Substance: LOSARTAN
     Dosage: 100 MG 1 DAYS
     Route: 048
     Dates: start: 201801
  5. BISOPROLOL (2328A) [Concomitant]
     Active Substance: BISOPROLOL
     Indication: ATRIAL FIBRILLATION
     Dosage: 2.5 MG 1 DAYS
     Route: 048
     Dates: start: 201606

REACTIONS (2)
  - Lower gastrointestinal haemorrhage [Unknown]
  - Drug interaction [Unknown]

NARRATIVE: CASE EVENT DATE: 20190709
